FAERS Safety Report 7351295-6 (Version None)
Quarter: 2011Q1

REPORT INFORMATION
  Report Type: 
  Country: None (occurrence: None)
  Receive Date: 20110304
  Receipt Date: 20110214
  Transmission Date: 20110831
  Serious: Yes (Hospitalization)
  Sender: FDA-Public Use
  Company Number: CIO11003586

PATIENT
  Age: 61 Year
  Sex: Male

DRUGS (3)
  1. AFRIN (00070001) (OXYMETAZOLINE) [Suspect]
     Indication: UPPER AIRWAY OBSTRUCTION
     Dosage: INTRANASAL
     Route: 045
  2. PHENYLEPHRINE HCL [Suspect]
     Indication: UPPER AIRWAY OBSTRUCTION
     Dosage: INTRANASAL
     Route: 045
  3. SINEX NASAL SPRAY OR MIST, VERSION UNKNOWN (CAMPHOR 0.067 MG, EUCALYPT [Suspect]
     Indication: UPPER AIRWAY OBSTRUCTION
     Dosage: INTRANASAL
     Route: 045

REACTIONS (19)
  - NERVOUSNESS [None]
  - HALLUCINATION, AUDITORY [None]
  - HALLUCINATION, VISUAL [None]
  - PANIC REACTION [None]
  - AGGRESSION [None]
  - DELUSION [None]
  - PSYCHOMOTOR HYPERACTIVITY [None]
  - MENTAL DISORDER DUE TO A GENERAL MEDICAL CONDITION [None]
  - SCHIZOPHRENIA, UNDIFFERENTIATED TYPE [None]
  - CHEST X-RAY ABNORMAL [None]
  - NASAL CONGESTION [None]
  - PARANASAL SINUS MUCOSAL HYPERTROPHY [None]
  - INSOMNIA [None]
  - FEAR [None]
  - ANXIETY DISORDER [None]
  - DEPRESSION [None]
  - INCORRECT DRUG ADMINISTRATION DURATION [None]
  - PSYCHOTIC DISORDER [None]
  - AMNESIA [None]
